FAERS Safety Report 24780715 (Version 1)
Quarter: 2024Q4

REPORT INFORMATION
  Report Type: Spontaneous
  Country: CN (occurrence: CN)
  Receive Date: 20241227
  Receipt Date: 20241227
  Transmission Date: 20250115
  Serious: Yes (Life-Threatening)
  Sender: AMGEN
  Company Number: CN-AMGEN-CHNSP2024253949

PATIENT
  Age: 62 Year
  Sex: Female

DRUGS (2)
  1. BLINCYTO [Suspect]
     Active Substance: BLINATUMOMAB
     Indication: Acute leukaemia
     Dosage: 8.75 MICROGRAM, QD, DRIP
     Route: 040
     Dates: start: 20241212, end: 202412
  2. BLINCYTO [Suspect]
     Active Substance: BLINATUMOMAB
     Dosage: 28 MICROGRAM, QD, DRIP
     Route: 040
     Dates: start: 20241219, end: 20241219

REACTIONS (2)
  - Tremor [Recovering/Resolving]
  - Pyrexia [Recovering/Resolving]

NARRATIVE: CASE EVENT DATE: 20241221
